FAERS Safety Report 8772992 (Version 2)
Quarter: 2012Q4

REPORT INFORMATION
  Report Type: Report from Study
  Country: US (occurrence: US)
  Receive Date: 20120907
  Receipt Date: 20121005
  Transmission Date: 20130627
  Serious: Yes (Hospitalization)
  Sender: FDA-Public Use
  Company Number: US-ABBOTT-12P-163-0974072-00

PATIENT
  Age: 43 None
  Sex: Male
  Weight: 62.65 kg

DRUGS (2)
  1. HUMIRA [Suspect]
     Indication: CROHN^S DISEASE
     Route: 058
     Dates: start: 201009
  2. HUMIRA [Suspect]
     Indication: INTESTINAL FISTULA
     Route: 058
     Dates: start: 201208

REACTIONS (5)
  - Small intestinal obstruction [Recovered/Resolved]
  - Crohn^s disease [Unknown]
  - Nausea [Unknown]
  - Vomiting [Unknown]
  - Gastrointestinal oedema [Unknown]
